FAERS Safety Report 7256566-X (Version None)
Quarter: 2011Q1

REPORT INFORMATION
  Report Type: 
  Country: None (occurrence: None)
  Receive Date: 20110129
  Receipt Date: 20100701
  Transmission Date: 20110831
  Serious: No
  Sender: FDA-Public Use
  Company Number: US-ABBOTT-10P-163-0654762-00

PATIENT
  Age: 30 Year
  Sex: Female

DRUGS (4)
  1. NEXIUM [Concomitant]
     Indication: DYSPEPSIA
  2. NEXIUM [Concomitant]
     Indication: ULCER
  3. CANASA [Concomitant]
     Indication: CROHN'S DISEASE
     Dosage: 1 AT BEDTIME
  4. HUMIRA [Suspect]
     Indication: CROHN'S DISEASE
     Dates: start: 20100611

REACTIONS (1)
  - FATIGUE [None]
